FAERS Safety Report 7986883-7 (Version None)
Quarter: 2011Q4

REPORT INFORMATION
  Report Type: 
  Country: None (occurrence: None)
  Receive Date: 20111216
  Receipt Date: 20110323
  Transmission Date: 20120403
  Serious: No
  Sender: FDA-Public Use
  Company Number: US-BRISTOL-MYERS SQUIBB COMPANY-15583933

PATIENT
  Age: 7 Year
  Sex: Female

DRUGS (4)
  1. ABILIFY [Suspect]
     Indication: MOOD SWINGS
     Dosage: TITRATED WITH 2 MG ORAL
     Route: 048
     Dates: start: 20100616, end: 20100627
  2. ABILIFY [Suspect]
     Indication: AGITATION
     Dosage: TITRATED WITH 2 MG ORAL
     Route: 048
     Dates: start: 20100616, end: 20100627
  3. ABILIFY [Suspect]
     Indication: NIGHTMARE
     Dosage: TITRATED WITH 2 MG ORAL
     Route: 048
     Dates: start: 20100616, end: 20100627
  4. ABILIFY [Suspect]
     Indication: POST-TRAUMATIC STRESS DISORDER
     Dosage: TITRATED WITH 2 MG ORAL
     Route: 048
     Dates: start: 20100616, end: 20100627

REACTIONS (2)
  - BLOOD GLUCOSE INCREASED [None]
  - WEIGHT INCREASED [None]
